FAERS Safety Report 26050843 (Version 1)
Quarter: 2025Q4

REPORT INFORMATION
  Report Type: Report from Study
  Country: IL (occurrence: IL)
  Receive Date: 20251116
  Receipt Date: 20251116
  Transmission Date: 20260117
  Serious: Yes (Hospitalization, Other)
  Sender: JOHNSON AND JOHNSON
  Company Number: IL-JNJFOC-20251148941

PATIENT

DRUGS (1)
  1. USTEKINUMAB [Suspect]
     Active Substance: USTEKINUMAB
     Indication: Psoriasis
     Route: 058

REACTIONS (7)
  - Pneumonia [Unknown]
  - Urosepsis [Unknown]
  - Sepsis [Unknown]
  - Osteomyelitis acute [Unknown]
  - Pyrexia [Unknown]
  - Urinary tract infection [Unknown]
  - Soft tissue infection [Unknown]
